FAERS Safety Report 8594348 (Version 9)
Quarter: 2016Q4

REPORT INFORMATION
  Report Type: Spontaneous
  Country: JP (occurrence: JP)
  Receive Date: 20120604
  Receipt Date: 20161007
  Transmission Date: 20170207
  Serious: Yes (Death, Hospitalization, Other)
  Sender: FDA-Public Use
  Company Number: JP-GILEAD-2012-0055803

PATIENT
  Age: 79 Year
  Sex: Female
  Weight: 38 kg

DRUGS (8)
  1. REVATIO [Concomitant]
     Active Substance: SILDENAFIL CITRATE
     Indication: PULMONARY ARTERIAL HYPERTENSION
     Dosage: 20 ?G, BID
     Route: 048
     Dates: start: 20120428
  2. RENIVACE [Concomitant]
     Active Substance: ENALAPRIL
     Indication: HYPERTENSION
     Dosage: 1.25 MG, QD
     Route: 048
  3. ARTIST [Concomitant]
     Active Substance: CARVEDILOL
     Indication: HYPERTENSION
     Dosage: 1.25 MG, QD
     Route: 048
  4. FLOLAN [Concomitant]
     Active Substance: EPOPROSTENOL SODIUM
     Indication: PULMONARY ARTERIAL HYPERTENSION
     Dosage: UNK
     Route: 042
  5. AMBRISENTAN [Suspect]
     Active Substance: AMBRISENTAN
     Indication: PULMONARY ARTERIAL HYPERTENSION
     Dosage: 2.5 MG, QD
     Route: 048
     Dates: start: 20120511, end: 20120514
  6. BERASUS [Concomitant]
     Active Substance: BERAPROST SODIUM
     Indication: PULMONARY ARTERIAL HYPERTENSION
     Dosage: 60 UG, BID
     Route: 048
     Dates: start: 20120505
  7. TAKEPRON [Concomitant]
     Active Substance: LANSOPRAZOLE
     Indication: GASTROOESOPHAGEAL REFLUX DISEASE
     Dosage: 15 MG, QD
     Route: 048
  8. DOBUTAMINE [Concomitant]
     Active Substance: DOBUTAMINE\DOBUTAMINE HYDROCHLORIDE
     Dosage: UNK

REACTIONS (25)
  - Malaise [Unknown]
  - Anaemia [Recovering/Resolving]
  - Off label use [Recovered/Resolved]
  - Ileus [Unknown]
  - Infection [Unknown]
  - Pleural effusion [Unknown]
  - Cardiac failure [Unknown]
  - Weight increased [Unknown]
  - Diaphragmatic disorder [Unknown]
  - General physical health deterioration [Unknown]
  - Urinary tract infection [Unknown]
  - Ascites [Unknown]
  - Fluid retention [Unknown]
  - Pulmonary hypertension [Unknown]
  - Atelectasis [Unknown]
  - Cardio-respiratory arrest [Fatal]
  - Pulmonary veno-occlusive disease [Unknown]
  - Left ventricular hypertrophy [Unknown]
  - Circulatory collapse [Fatal]
  - Pyrexia [Unknown]
  - Hypotension [Unknown]
  - Right ventricular failure [Unknown]
  - Fatigue [Unknown]
  - Left ventricular failure [Unknown]
  - Hypoalbuminaemia [Unknown]

NARRATIVE: CASE EVENT DATE: 20120511
